FAERS Safety Report 15778220 (Version 7)
Quarter: 2019Q3

REPORT INFORMATION
  Report Type: Report from Study
  Country: US (occurrence: US)
  Receive Date: 20181231
  Receipt Date: 20190716
  Transmission Date: 20191004
  Serious: Yes (Hospitalization)
  Sender: FDA-Public Use
  Company Number: US-ACTELION-A-NJ2018-181042

PATIENT
  Age: 61 Year
  Sex: Female
  Weight: 72.56 kg

DRUGS (13)
  1. POTASSIUM [Concomitant]
     Active Substance: POTASSIUM
     Dosage: 1875 MEQ, BID
  2. SAVELLA [Concomitant]
     Active Substance: MILNACIPRAN HYDROCHLORIDE
     Dosage: 100 MG, BID
     Dates: start: 2014
  3. ASPIRIN. [Concomitant]
     Active Substance: ASPIRIN
     Dosage: 81 MG, QD
     Dates: start: 201808
  4. EFFIENT [Concomitant]
     Active Substance: PRASUGREL HYDROCHLORIDE
     Dosage: 10 MG, QD
  5. VERAPAMIL [Concomitant]
     Active Substance: VERAPAMIL HYDROCHLORIDE
  6. UPTRAVI [Suspect]
     Active Substance: SELEXIPAG
     Dosage: 800 MCG, BID
     Route: 048
  7. UPTRAVI [Suspect]
     Active Substance: SELEXIPAG
     Dosage: 1000 MCG, BID
     Route: 048
  8. LASIX [Concomitant]
     Active Substance: FUROSEMIDE
     Dosage: 80 MG, QD
     Dates: start: 201808
  9. OPSUMIT [Suspect]
     Active Substance: MACITENTAN
     Indication: PULMONARY ARTERIAL HYPERTENSION
     Dosage: 10 MG, QD
     Route: 048
     Dates: start: 201811, end: 20181209
  10. OPSUMIT [Suspect]
     Active Substance: MACITENTAN
     Dosage: 10 MG, QD
     Route: 048
     Dates: start: 201810, end: 201810
  11. CLONIDINE. [Concomitant]
     Active Substance: CLONIDINE
     Dosage: UNK MG, QD
  12. UPTRAVI [Suspect]
     Active Substance: SELEXIPAG
     Indication: PULMONARY ARTERIAL HYPERTENSION
     Dosage: 1200 MCG, BID
     Route: 048
  13. UPTRAVI [Suspect]
     Active Substance: SELEXIPAG
     Dosage: 600 MCG
     Route: 048

REACTIONS (24)
  - Haemorrhage [Unknown]
  - Malaise [Unknown]
  - Peripheral swelling [Not Recovered/Not Resolved]
  - Product dose omission [Recovered/Resolved]
  - Transfusion [Unknown]
  - Musculoskeletal pain [Unknown]
  - Vertigo [Unknown]
  - Headache [Unknown]
  - Abdominal discomfort [Unknown]
  - Anaemia [Not Recovered/Not Resolved]
  - Vomiting [Unknown]
  - Nausea [Unknown]
  - Abdominal pain upper [Unknown]
  - Asthenia [Not Recovered/Not Resolved]
  - Neck pain [Unknown]
  - Panic attack [Unknown]
  - Red blood cell abnormality [Unknown]
  - Haemoglobin decreased [Not Recovered/Not Resolved]
  - Chest pain [Recovering/Resolving]
  - Swelling of eyelid [Not Recovered/Not Resolved]
  - Heart rate increased [Unknown]
  - Dyspnoea [Recovering/Resolving]
  - Oedema peripheral [Not Recovered/Not Resolved]
  - Dyspnoea exertional [Unknown]

NARRATIVE: CASE EVENT DATE: 2018
